FAERS Safety Report 9267217 (Version 2)
Quarter: 2013Q2

REPORT INFORMATION
  Report Type: Report from Study
  Country: CN (occurrence: CN)
  Receive Date: 20130502
  Receipt Date: 20130508
  Transmission Date: 20140414
  Serious: Yes (Hospitalization)
  Sender: FDA-Public Use
  Company Number: PHHO2013CN001156

PATIENT
  Age: 27 Year
  Sex: Female
  Weight: 50 kg

DRUGS (3)
  1. ICL670A [Suspect]
     Indication: IRON OVERLOAD
     Dosage: 40 MG/KG, QD
     Dates: start: 20110224, end: 20130111
  2. ICL670A [Suspect]
     Dosage: NO TREATMENT
     Dates: start: 20130112, end: 20130113
  3. ICL670A [Suspect]
     Dosage: 40 MG/KG, QD
     Dates: start: 20130114

REACTIONS (1)
  - Cholecystitis [Recovered/Resolved]
